FAERS Safety Report 13203221 (Version 6)
Quarter: 2019Q3

REPORT INFORMATION
  Report Type: Report from Study
  Country: GB (occurrence: GB)
  Receive Date: 20170209
  Receipt Date: 20190719
  Transmission Date: 20191004
  Serious: Yes (Hospitalization, Other)
  Sender: FDA-Public Use
  Company Number: GB-MYLANLABS-2017M1006913

PATIENT
  Sex: Female
  Weight: 53.6 kg

DRUGS (8)
  1. PHOSPHATE SANDOZ [Concomitant]
     Active Substance: SODIUM PHOSPHATE, MONOBASIC, ANHYDROUS
  2. ETOPOSIDE. [Suspect]
     Active Substance: ETOPOSIDE
     Indication: OSTEOSARCOMA
     Dosage: 100 MILLIGRAM/SQ. METER, CYCLE
     Route: 042
     Dates: start: 20161121
  3. ONDANSETRON [Concomitant]
     Active Substance: ONDANSETRON
     Indication: PRODUCT USED FOR UNKNOWN INDICATION
  4. LENVATINIB [Suspect]
     Active Substance: LENVATINIB
     Dosage: 13 MILLIGRAM, QD
     Route: 048
     Dates: start: 20170124
  5. IFOSFAMIDE. [Suspect]
     Active Substance: IFOSFAMIDE
     Indication: OSTEOSARCOMA
     Dosage: 3000 MILLIGRAM/SQ. METER, CYCLE
     Route: 042
     Dates: start: 20161121
  6. LENVATINIB [Suspect]
     Active Substance: LENVATINIB
     Indication: OSTEOSARCOMA
     Dosage: 18 MILLIGRAM, QD
     Route: 048
     Dates: start: 20161121, end: 20161130
  7. LENVATINIB [Suspect]
     Active Substance: LENVATINIB
     Dosage: 18 MILLIGRAM, QD
     Route: 048
     Dates: start: 20161205, end: 20170113
  8. METOCLOPRAMIDE. [Concomitant]
     Active Substance: METOCLOPRAMIDE
     Indication: PRODUCT USED FOR UNKNOWN INDICATION

REACTIONS (13)
  - Pain [Not Recovered/Not Resolved]
  - Erythema [Unknown]
  - Bone marrow failure [Unknown]
  - Abdominal pain [Recovering/Resolving]
  - Diarrhoea haemorrhagic [Unknown]
  - Proctalgia [Unknown]
  - Wound infection bacterial [Recovered/Resolved]
  - Back pain [Recovered/Resolved]
  - Febrile neutropenia [Recovered/Resolved]
  - Constipation [Unknown]
  - Arthropathy [Unknown]
  - Infection [Unknown]
  - Epistaxis [Recovered/Resolved]

NARRATIVE: CASE EVENT DATE: 20161128
